FAERS Safety Report 5328113-0 (Version None)
Quarter: 2007Q2

REPORT INFORMATION
  Report Type: 
  Country: None (occurrence: None)
  Receive Date: 20070517
  Receipt Date: 20070509
  Transmission Date: 20071010
  Serious: Yes (Hospitalization)
  Sender: FDA-Public Use
  Company Number: US-GENENTECH-241123

PATIENT
  Sex: Female

DRUGS (2)
  1. BEVACIZUMAB [Suspect]
     Indication: NEOPLASM MALIGNANT
     Dosage: 5 MG/KG, UNK
     Route: 042
     Dates: start: 20061212
  2. SUNITINIB MALATE [Suspect]
     Indication: NEOPLASM MALIGNANT
     Dosage: 37.5 MG, UNK
     Route: 048
     Dates: start: 20061212

REACTIONS (1)
  - NECROSIS [None]
